FAERS Safety Report 5638361-8 (Version None)
Quarter: 2008Q1

REPORT INFORMATION
  Report Type: 
  Country: None (occurrence: None)
  Receive Date: 20080226
  Receipt Date: 20080219
  Transmission Date: 20080703
  Serious: Yes (Hospitalization)
  Sender: FDA-Public Use
  Company Number: FR-AVENTIS-200713133FR

PATIENT
  Age: 67 Year
  Sex: Female

DRUGS (7)
  1. TAVANIC [Suspect]
     Indication: SINUSITIS
  2. TAVANIC [Suspect]
     Indication: EAR INFECTION
  3. LASILIX                            /00032601/ [Suspect]
     Indication: HYPERTENSION
  4. LASILIX                            /00032601/ [Concomitant]
     Route: 048
  5. LASILIX                            /00032601/ [Concomitant]
     Route: 042
     Dates: start: 20080201
  6. RENITEC                            /00574901/ [Concomitant]
     Indication: HYPERTENSION
  7. NSAID'S [Concomitant]

REACTIONS (4)
  - DRUG INTERACTION [None]
  - HYPERKALAEMIA [None]
  - HYPONATRAEMIA [None]
  - RENAL FAILURE ACUTE [None]
